FAERS Safety Report 24125867 (Version 2)
Quarter: 2025Q2

REPORT INFORMATION
  Report Type: Spontaneous
  Country: US (occurrence: None)
  Receive Date: 20240723
  Receipt Date: 20250516
  Transmission Date: 20250717
  Serious: Yes (Other)
  Sender: INCYTE
  Company Number: US-INCYTE CORPORATION-2024IN007564

PATIENT
  Age: 62 Year

DRUGS (1)
  1. JAKAFI [Suspect]
     Active Substance: RUXOLITINIB
     Indication: Product used for unknown indication
     Dosage: 10 MILLIGRAM, BID

REACTIONS (10)
  - Stomatitis [Unknown]
  - Fungal infection [Unknown]
  - Fall [Recovering/Resolving]
  - Loss of consciousness [Recovering/Resolving]
  - Vomiting [Unknown]
  - Dizziness [Unknown]
  - Pain [Unknown]
  - Candida infection [Unknown]
  - Asthenia [Unknown]
  - Nausea [Unknown]
